FAERS Safety Report 4734062-9 (Version None)
Quarter: 2005Q3

REPORT INFORMATION
  Report Type: 
  Country: None (occurrence: None)
  Receive Date: 20050803
  Receipt Date: 20050803
  Transmission Date: 20060218
  Serious: Yes (Life-Threatening)
  Sender: FDA-Public Use
  Company Number: None

PATIENT
  Age: 77 Year
  Sex: Female
  Weight: 63.05 kg

DRUGS (8)
  1. PANGLOBULIN [Suspect]
     Dosage: 50 GRAMS EVERY 24 HOURS IV
     Route: 042
     Dates: start: 20050512, end: 20050513
  2. FOLIC ACID [Concomitant]
  3. FUROSEMIDE [Concomitant]
  4. LANSOPRAZOLE [Concomitant]
  5. LEVOXYL [Concomitant]
  6. PREDNISONE [Concomitant]
  7. PROMETHAZINE [Concomitant]
  8. SPIRONOLACTONE [Concomitant]

REACTIONS (2)
  - RENAL FAILURE ACUTE [None]
  - RENAL TUBULAR NECROSIS [None]
